FAERS Safety Report 20336219 (Version 1)
Quarter: 2022Q1

REPORT INFORMATION
  Report Type: Spontaneous
  Country: US (occurrence: None)
  Receive Date: 20220114
  Receipt Date: 20220114
  Transmission Date: 20220423
  Serious: Yes (Hospitalization)
  Sender: FDA-Public Use
  Company Number: None

PATIENT
  Age: 57 Year
  Sex: Female
  Weight: 54 kg

DRUGS (1)
  1. RITUXIMAB [Suspect]
     Active Substance: RITUXIMAB
     Indication: Product used for unknown indication
     Dates: end: 20211014

REACTIONS (13)
  - Sepsis [None]
  - Febrile neutropenia [None]
  - Disorientation [None]
  - Confusional state [None]
  - Dyspnoea [None]
  - Hypoxia [None]
  - Pneumonia [None]
  - Platelet count decreased [None]
  - Blood potassium decreased [None]
  - Procalcitonin increased [None]
  - Septic shock [None]
  - Blood pressure increased [None]
  - Heart rate increased [None]

NARRATIVE: CASE EVENT DATE: 20220105
